FAERS Safety Report 14144877 (Version 1)
Quarter: 2017Q4

REPORT INFORMATION
  Report Type: Other
  Country: US (occurrence: US)
  Receive Date: 20171031
  Receipt Date: 20171031
  Transmission Date: 20180321
  Serious: Yes (Life-Threatening, Other)
  Sender: FDA-Public Use
  Company Number: US-VELOXIS PHARMACEUTICALS-2032810

PATIENT
  Age: 36 Year
  Sex: Male

DRUGS (7)
  1. MYCOPHENOLATE MOFETIL. [Suspect]
     Active Substance: MYCOPHENOLATE MOFETIL
  2. ENVARSUS XR [Suspect]
     Active Substance: TACROLIMUS
     Indication: STEM CELL TRANSPLANT
  3. LEVOFLOXACIN. [Suspect]
     Active Substance: LEVOFLOXACIN
  4. VORICONAZOLE. [Suspect]
     Active Substance: VORICONAZOLE
  5. ACYCLOVIR. [Suspect]
     Active Substance: ACYCLOVIR
  6. FLUDARABINE [Suspect]
     Active Substance: FLUDARABINE PHOSPHATE
  7. CYCLOPHOSPHAMIDE. [Suspect]
     Active Substance: CYCLOPHOSPHAMIDE

REACTIONS (3)
  - Intentional product use issue [Unknown]
  - Acute graft versus host disease in intestine [Unknown]
  - Acute graft versus host disease [Unknown]
